FAERS Safety Report 5208868-6 (Version None)
Quarter: 2007Q1

REPORT INFORMATION
  Report Type: 
  Country: None (occurrence: None)
  Receive Date: 20070116
  Receipt Date: 20070110
  Transmission Date: 20070707
  Serious: Yes (Hospitalization)
  Sender: FDA-Public Use
  Company Number: JP-BRISTOL-MYERS SQUIBB COMPANY-13641345

PATIENT
  Age: 77 Year
  Sex: Female

DRUGS (4)
  1. HYDREA [Suspect]
     Indication: ESSENTIAL THROMBOCYTHAEMIA
     Route: 048
     Dates: start: 20020101, end: 20061123
  2. ASPIRIN [Suspect]
     Route: 048
     Dates: end: 20061123
  3. GASMOTIN [Suspect]
     Route: 048
     Dates: end: 20061123
  4. TAKEPRON [Suspect]
     Route: 048
     Dates: end: 20061123

REACTIONS (1)
  - SMALL INTESTINE ULCER [None]
